FAERS Safety Report 8438108-6 (Version None)
Quarter: 2012Q2

REPORT INFORMATION
  Report Type: 
  Country: None (occurrence: None)
  Receive Date: 20120614
  Receipt Date: 20120605
  Transmission Date: 20120825
  Serious: Yes (Hospitalization, Other)
  Sender: FDA-Public Use
  Company Number: US-ACTELION-A-NJ2012-65925

PATIENT

DRUGS (18)
  1. TRACLEER [Concomitant]
     Indication: PULMONARY ARTERIAL HYPERTENSION
     Dosage: UNK
     Route: 048
     Dates: start: 20080319
  2. REMERON [Concomitant]
     Dosage: UNK
     Dates: start: 20120430
  3. DIGOXIN [Concomitant]
     Dosage: UNK
     Dates: start: 20080226
  4. ZANTAC [Concomitant]
  5. SPIRONOLACTONE [Concomitant]
     Dosage: UNK
     Dates: start: 20100614
  6. HIBICLENS [Concomitant]
     Dosage: UNK
     Dates: start: 20100701
  7. ZOFRAN [Concomitant]
     Dosage: UNK
     Dates: start: 20120501
  8. FERROUS SULFATE TAB [Concomitant]
  9. COUMADIN [Concomitant]
     Dosage: UNK
     Dates: start: 20080319
  10. REVATIO [Concomitant]
     Dosage: UNK
     Dates: start: 20080221
  11. OXYCODONE HCL [Concomitant]
  12. EPOPROSTENOL SODIUM [Suspect]
     Indication: PULMONARY ARTERIAL HYPERTENSION
     Dosage: 30 NG/KG, PER MIN
     Route: 041
     Dates: start: 20101019, end: 20120101
  13. NAFCILLIN [Suspect]
  14. FUROSEMIDE [Concomitant]
     Dosage: UNK
     Dates: start: 20080903
  15. CELEXA [Concomitant]
  16. POTASSIUM CHLORIDE [Concomitant]
  17. OXYGEN [Concomitant]
     Dosage: UNK
     Dates: start: 20090401
  18. EPOPROSTENOL SODIUM [Suspect]
     Dosage: 33 NG/KG, PER MIN
     Route: 041
     Dates: start: 20120101

REACTIONS (14)
  - BACTERAEMIA [None]
  - CARDIAC OUTPUT DECREASED [None]
  - PNEUMONIA [None]
  - ENDOCARDITIS [None]
  - PYREXIA [None]
  - FLUID OVERLOAD [None]
  - ATRIAL FLUTTER [None]
  - RASH [None]
  - PULMONARY ARTERIAL WEDGE PRESSURE INCREASED [None]
  - PULMONARY HYPERTENSION [None]
  - PULMONARY OEDEMA [None]
  - HYPOXIA [None]
  - ABDOMINAL DISTENSION [None]
  - DYSPNOEA [None]
